FAERS Safety Report 20387988 (Version 3)
Quarter: 2022Q3

REPORT INFORMATION
  Report Type: Report from Study
  Country: US (occurrence: US)
  Receive Date: 20220128
  Receipt Date: 20220714
  Transmission Date: 20221027
  Serious: No
  Sender: FDA-Public Use
  Company Number: US-SANOFI-00942472

PATIENT
  Age: 70 Year
  Sex: Female

DRUGS (12)
  1. DUPILUMAB [Suspect]
     Active Substance: DUPILUMAB
     Dosage: 600 MG, 1X
     Route: 058
     Dates: start: 20220113, end: 20220113
  2. DUPILUMAB [Suspect]
     Active Substance: DUPILUMAB
     Dosage: 300 MG, QOW
     Route: 058
     Dates: start: 20220209
  3. DUPILUMAB [Suspect]
     Active Substance: DUPILUMAB
     Dosage: 300 MG, QOW
     Route: 058
  4. FLUTICASONE [Concomitant]
     Active Substance: FLUTICASONE
     Dosage: UNK
  5. METHOTREXATE [Concomitant]
     Active Substance: METHOTREXATE
     Dosage: UNK
  6. FOLIC ACID [Concomitant]
     Active Substance: FOLIC ACID
     Dosage: UNK
  7. CALCIUM CITRATE [Concomitant]
     Active Substance: CALCIUM CITRATE
     Dosage: UNK
  8. ALPHAGAN P [Concomitant]
     Active Substance: BRIMONIDINE TARTRATE
     Dosage: UNK
  9. PEPCID [Concomitant]
     Active Substance: FAMOTIDINE
     Dosage: UNK
  10. OXYBUTYNIN [Concomitant]
     Active Substance: OXYBUTYNIN
     Dosage: UNK
  11. AZELASTINE [Concomitant]
     Active Substance: AZELASTINE
     Dosage: UNK
  12. SINGULAIR [Concomitant]
     Active Substance: MONTELUKAST SODIUM
     Dosage: UNK

REACTIONS (4)
  - Constipation [Unknown]
  - Weight increased [Unknown]
  - Rash [Recovering/Resolving]
  - Unevaluable event [Unknown]

NARRATIVE: CASE EVENT DATE: 20220201
